FAERS Safety Report 5362427-3 (Version None)
Quarter: 2007Q2

REPORT INFORMATION
  Report Type: 
  Country: None (occurrence: None)
  Receive Date: 20070530
  Receipt Date: 20070323
  Transmission Date: 20071010
  Serious: No
  Sender: FDA-Public Use
  Company Number: 2007PV032231

PATIENT
  Sex: Male

DRUGS (4)
  1. BYETTA [Suspect]
     Indication: DIABETES MELLITUS
     Dosage: 10 MCG;BID;SC
     Route: 058
     Dates: start: 20060101
  2. ACTOS [Concomitant]
  3. GLIPIZIDE [Concomitant]
  4. INSULIN [Concomitant]

REACTIONS (1)
  - BLOOD GLUCOSE INCREASED [None]
